FAERS Safety Report 11469870 (Version 3)
Quarter: 2015Q4

REPORT INFORMATION
  Report Type: Spontaneous
  Country: FR (occurrence: FR)
  Receive Date: 20150908
  Receipt Date: 20151015
  Transmission Date: 20160304
  Serious: Yes (Other)
  Sender: FDA-Public Use
  Company Number: FR-BRISTOL-MYERS SQUIBB COMPANY-BMS-2015-058479

PATIENT
  Age: 75 Year
  Sex: Female

DRUGS (4)
  1. ATENOLOL. [Concomitant]
     Active Substance: ATENOLOL
     Indication: PRODUCT USED FOR UNKNOWN INDICATION
     Dosage: 500 MG, UNK
     Route: 065
  2. RYTHMODAN                          /00271801/ [Concomitant]
     Active Substance: DISOPYRAMIDE
     Indication: ARRHYTHMIA
     Route: 065
  3. ELIQUIS [Suspect]
     Active Substance: APIXABAN
     Indication: PRODUCT USED FOR UNKNOWN INDICATION
     Dosage: 5 MG, BID
     Route: 048
     Dates: start: 20140708
  4. DAFALGAN [Concomitant]
     Active Substance: ACETAMINOPHEN
     Indication: PRODUCT USED FOR UNKNOWN INDICATION
     Route: 065

REACTIONS (12)
  - Paralysis [Not Recovered/Not Resolved]
  - Gingival swelling [Not Recovered/Not Resolved]
  - Pain in extremity [Not Recovered/Not Resolved]
  - Gingival pain [Not Recovered/Not Resolved]
  - Spinal pain [Unknown]
  - Headache [Unknown]
  - Arrhythmia [Unknown]
  - Weight decreased [Not Recovered/Not Resolved]
  - Epistaxis [Unknown]
  - Limb injury [Unknown]
  - Haemorrhage [Unknown]
  - General physical health deterioration [Not Recovered/Not Resolved]
